FAERS Safety Report 18808594 (Version 1)
Quarter: 2021Q1

REPORT INFORMATION
  Report Type: Spontaneous
  Country: US (occurrence: US)
  Receive Date: 20210129
  Receipt Date: 20210129
  Transmission Date: 20210419
  Serious: Yes (Disabling)
  Sender: FDA-Public Use
  Company Number: None

PATIENT
  Age: 24 Year
  Sex: Female
  Weight: 90 kg

DRUGS (8)
  1. CLARAVIS [Suspect]
     Active Substance: ISOTRETINOIN
     Indication: ACNE
     Route: 048
  2. VITAMIN E [Concomitant]
     Active Substance: .ALPHA.-TOCOPHEROL
  3. VITAMIN A [Concomitant]
     Active Substance: VITAMIN A
  4. ZINC. [Concomitant]
     Active Substance: ZINC
  5. MULTIVITAMIN [Concomitant]
     Active Substance: VITAMINS
  6. VITAMIN D [Concomitant]
     Active Substance: VITAMIN D NOS
  7. VITAMIN C [Concomitant]
     Active Substance: ASCORBIC ACID
  8. VITAMIN B12 [Concomitant]
     Active Substance: CYANOCOBALAMIN

REACTIONS (16)
  - Intraocular pressure increased [None]
  - Nausea [None]
  - Alopecia [None]
  - Meibomian gland dysfunction [None]
  - Arthralgia [None]
  - Hypertriglyceridaemia [None]
  - Lip haemorrhage [None]
  - Ocular rosacea [None]
  - Photosensitivity reaction [None]
  - Epistaxis [None]
  - Headache [None]
  - Chapped lips [None]
  - Fatigue [None]
  - Somnolence [None]
  - Conjunctivitis [None]
  - Dry skin [None]

NARRATIVE: CASE EVENT DATE: 20201203
